FAERS Safety Report 7296720-4 (Version None)
Quarter: 2011Q1

REPORT INFORMATION
  Report Type: 
  Country: None (occurrence: None)
  Receive Date: 20110204
  Receipt Date: 20110119
  Transmission Date: 20110831
  Serious: Yes (Life-Threatening, Other)
  Sender: FDA-Public Use
  Company Number: PPC201100016

PATIENT
  Age: 15 Year
  Sex: Female

DRUGS (3)
  1. ETOPOSIDE [Concomitant]
  2. CYCLOPHOSPHAMIDE [Concomitant]
  3. IFOSFAMIDE [Suspect]
     Indication: EWING'S SARCOMA

REACTIONS (3)
  - NEUTROPENIA [None]
  - ANAEMIA [None]
  - ACUTE MYELOID LEUKAEMIA [None]
